FAERS Safety Report 4527465-9 (Version None)
Quarter: 2004Q4

REPORT INFORMATION
  Report Type: 
  Country: None (occurrence: None)
  Receive Date: 20041123
  Receipt Date: 20040714
  Transmission Date: 20050328
  Serious: Yes (Other)
  Sender: FDA-Public Use
  Company Number: 2004047927

PATIENT
  Age: 58 Year
  Sex: Male
  Weight: 93.441 kg

DRUGS (5)
  1. LIPITOR [Suspect]
     Indication: BLOOD CHOLESTEROL INCREASED
     Dosage: 10 MG (10 MG, 1 IN 1 D), ORAL
     Route: 048
     Dates: end: 20040101
  2. LIPITOR [Suspect]
     Indication: LOW DENSITY LIPOPROTEIN
     Dosage: 10 MG (10 MG, 1 IN 1 D), ORAL
     Route: 048
     Dates: end: 20040101
  3. CLONAZEPAM [Concomitant]
  4. BACLOFEN [Concomitant]
  5. PRAMIPEXOLE (PRAMIPEXOLE) [Concomitant]

REACTIONS (3)
  - MUSCULAR WEAKNESS [None]
  - PAIN [None]
  - RHABDOMYOLYSIS [None]
